FAERS Safety Report 15895793 (Version 2)
Quarter: 2019Q1

REPORT INFORMATION
  Report Type: Spontaneous
  Country: US (occurrence: US)
  Receive Date: 20190131
  Receipt Date: 20190201
  Transmission Date: 20190417
  Serious: Yes (Life-Threatening, Hospitalization)
  Sender: FDA-Public Use
  Company Number: US-TEVA-2019-US-1004357

PATIENT
  Age: 76 Year
  Sex: Female

DRUGS (6)
  1. LIDOCAINE. [Suspect]
     Active Substance: LIDOCAINE
     Indication: LOCAL ANAESTHESIA
     Dosage: APPROXIMATELY TWO DOSES OF LIDOCAINE 2% (20-30ML); TOTAL DOSE OF GREATER THAN 3800MG
     Route: 061
  2. WARFARIN [Concomitant]
     Active Substance: WARFARIN
     Indication: CARDIAC FAILURE
     Route: 065
  3. CARVEDILOL. [Concomitant]
     Active Substance: CARVEDILOL
     Indication: CARDIAC FAILURE
     Route: 065
  4. LIDOCAINE. [Suspect]
     Active Substance: LIDOCAINE
     Indication: LOCAL ANAESTHESIA
     Dosage: APPROXIMATELY THREE DOSES OF LIDOCAINE 4 % (25-30ML); TOTAL DOSE OF GREATER THAN 3800MG
     Route: 061
  5. ENOXAPARIN [Concomitant]
     Active Substance: ENOXAPARIN
     Indication: CARDIAC FAILURE
     Route: 065
  6. FUROSEMIDE. [Concomitant]
     Active Substance: FUROSEMIDE
     Indication: CARDIAC FAILURE
     Route: 042

REACTIONS (16)
  - Neurotoxicity [Recovering/Resolving]
  - Systemic toxicity [Recovering/Resolving]
  - Dysarthria [Unknown]
  - Cardiac arrest [Recovering/Resolving]
  - Pulse absent [Unknown]
  - Respiratory failure [Recovering/Resolving]
  - Acute kidney injury [Recovered/Resolved]
  - Bradycardia [Unknown]
  - Unresponsive to stimuli [Unknown]
  - Right ventricular dysfunction [Unknown]
  - Aggression [Unknown]
  - Confusional state [Unknown]
  - Seizure [Unknown]
  - Mydriasis [Unknown]
  - Renal tubular necrosis [Recovered/Resolved]
  - Hypoxia [Unknown]
